FAERS Safety Report 11497505 (Version 5)
Quarter: 2019Q1

REPORT INFORMATION
  Report Type: Spontaneous
  Country: US (occurrence: US)
  Receive Date: 20150911
  Receipt Date: 20190306
  Transmission Date: 20190417
  Serious: Yes (Hospitalization, Other)
  Sender: FDA-Public Use
  Company Number: US-DSJP-DSU-2015-118907

PATIENT

DRUGS (6)
  1. BENICAR [Suspect]
     Active Substance: OLMESARTAN MEDOXOMIL
     Dosage: 20 MG, QD
     Route: 048
     Dates: start: 20130911
  2. BENICAR HCT [Suspect]
     Active Substance: HYDROCHLOROTHIAZIDE\OLMESARTAN MEDOXOMIL
     Indication: HYPERTENSION
     Dosage: 40/25 MG ONCE DAILY
     Route: 048
     Dates: start: 20040101, end: 2013
  3. BENICAR [Suspect]
     Active Substance: OLMESARTAN MEDOXOMIL
     Indication: HYPERTENSION
     Dosage: 20 MG, UNK
     Dates: start: 20040101, end: 20130410
  4. BENICAR [Suspect]
     Active Substance: OLMESARTAN MEDOXOMIL
     Indication: OEDEMA
     Dosage: 40 MG, QD
     Route: 048
     Dates: start: 2006, end: 2014
  5. BENICAR HCT [Suspect]
     Active Substance: HYDROCHLOROTHIAZIDE\OLMESARTAN MEDOXOMIL
     Indication: OEDEMA
     Dosage: 40/37.5 MG ONCE DAILY
     Route: 048
     Dates: start: 20040101, end: 2013
  6. HYDROCHLOROTHIAZIDE. [Concomitant]
     Active Substance: HYDROCHLOROTHIAZIDE
     Indication: PRODUCT USED FOR UNKNOWN INDICATION
     Dosage: 25 MG, QD
     Dates: start: 2004, end: 2013

REACTIONS (10)
  - Syncope [Unknown]
  - Off label use [Unknown]
  - Oesophageal disorder [Unknown]
  - Sprue-like enteropathy [Not Recovered/Not Resolved]
  - Large intestine polyp [Unknown]
  - Diverticulum intestinal [Unknown]
  - Peptic ulcer [Unknown]
  - Pyloric stenosis [Recovered/Resolved]
  - Acute kidney injury [Unknown]
  - Large intestine erosion [Unknown]

NARRATIVE: CASE EVENT DATE: 2006
